FAERS Safety Report 12146053 (Version 1)
Quarter: 2016Q1

REPORT INFORMATION
  Report Type: Spontaneous
  Country: US (occurrence: None)
  Receive Date: 20160303
  Receipt Date: 20160303
  Transmission Date: 20160526
  Serious: Yes (Other)
  Sender: FDA-Public Use
  Company Number: None

PATIENT
  Age: 24 Year
  Sex: Male

DRUGS (1)
  1. REMICADE [Suspect]
     Active Substance: INFLIXIMAB
     Indication: PSORIATIC ARTHROPATHY
     Dosage: 6 MG, Q8W, INTRAVENOUSLY
     Route: 042
     Dates: start: 20130621

REACTIONS (2)
  - Drug ineffective [None]
  - Hypersensitivity [None]

NARRATIVE: CASE EVENT DATE: 20151221
